FAERS Safety Report 23298881 (Version 1)
Quarter: 2023Q4

REPORT INFORMATION
  Report Type: Report from Study
  Country: BR (occurrence: BR)
  Receive Date: 20231215
  Receipt Date: 20231215
  Transmission Date: 20240109
  Serious: Yes (Hospitalization, Other)
  Sender: FDA-Public Use
  Company Number: BR-JNJFOC-20231117686

PATIENT
  Age: 81 Year
  Sex: Female
  Weight: 62 kg

DRUGS (5)
  1. SIMPONI [Suspect]
     Active Substance: GOLIMUMAB
     Indication: Rheumatoid arthritis
     Dosage: LAST DRUG APPLICATION: 17-OCT-2023
     Route: 058
     Dates: start: 20231017
  2. SIMPONI [Suspect]
     Active Substance: GOLIMUMAB
  3. DIVELOL [Concomitant]
     Indication: Product used for unknown indication
     Route: 048
  4. LASIX [Concomitant]
     Active Substance: FUROSEMIDE
     Indication: Product used for unknown indication
     Route: 048
  5. SPIRONOLACTONE [Concomitant]
     Active Substance: SPIRONOLACTONE
     Indication: Product used for unknown indication
     Route: 048

REACTIONS (11)
  - Hypotension [Unknown]
  - Limb injury [Unknown]
  - Inflammation [Unknown]
  - Decreased immune responsiveness [Unknown]
  - Asthenia [Unknown]
  - Pulmonary oedema [Unknown]
  - Urinary retention [Unknown]
  - Fall [Unknown]
  - Gait disturbance [Unknown]
  - Tremor [Unknown]
  - Swelling [Unknown]

NARRATIVE: CASE EVENT DATE: 20231001
